FAERS Safety Report 9452240 (Version 1)
Quarter: 2013Q3

REPORT INFORMATION
  Report Type: Other
  Country: US (occurrence: US)
  Receive Date: 20130812
  Receipt Date: 20130812
  Transmission Date: 20140515
  Serious: Yes (Other)
  Sender: FDA-Public Use
  Company Number: US-BRISTOL-MYERS SQUIBB COMPANY-19156041

PATIENT
  Sex: Female

DRUGS (3)
  1. PACLITAXEL [Suspect]
     Indication: BREAST CANCER
  2. ADRIAMYCIN [Suspect]
     Indication: BREAST CANCER
  3. CYTOXAN [Suspect]
     Indication: BREAST CANCER

REACTIONS (3)
  - Pre-eclampsia [Unknown]
  - Pregnancy [Recovered/Resolved]
  - Live birth [Unknown]
